FAERS Safety Report 5010747-4 (Version None)
Quarter: 2006Q2

REPORT INFORMATION
  Report Type: 
  Country: None (occurrence: None)
  Receive Date: 20060525
  Receipt Date: 20060413
  Transmission Date: 20061013
  Serious: Yes (Death)
  Sender: FDA-Public Use
  Company Number: US-AMGEN-US176207

PATIENT
  Age: 61 Year
  Sex: Female

DRUGS (2)
  1. EPOGEN [Suspect]
     Indication: RENAL FAILURE CHRONIC
     Dates: start: 19990202, end: 20060413
  2. SENSIPAR [Concomitant]
     Indication: HYPERPARATHYROIDISM SECONDARY

REACTIONS (2)
  - DEATH [None]
  - THERAPEUTIC RESPONSE DECREASED [None]
